FAERS Safety Report 12654720 (Version 1)
Quarter: 2016Q3

REPORT INFORMATION
  Report Type: Spontaneous
  Country: US (occurrence: None)
  Receive Date: 20160815
  Receipt Date: 20160815
  Transmission Date: 20161109
  Serious: Yes (Disabling)
  Sender: FDA-Public Use
  Company Number: None

PATIENT
  Age: 70 Year
  Sex: Female
  Weight: 79.38 kg

DRUGS (12)
  1. PRALUENT [Suspect]
     Active Substance: ALIROCUMAB
     Indication: BLOOD CHOLESTEROL INCREASED
     Dosage: 1 INJECTION
     Dates: start: 20160525, end: 20160706
  2. CARVEDILOL. [Concomitant]
     Active Substance: CARVEDILOL
  3. LIQUID TEARS [Concomitant]
     Active Substance: CARBOXYMETHYLCELLULOSE
  4. METHYLPREDNLSOLONE [Concomitant]
  5. HYDROCODONE/ACETAMINOPHEN [Concomitant]
     Active Substance: ACETAMINOPHEN\HYDROCODONE
  6. PHILLIPS COLON HEALTH [Concomitant]
  7. POTASSIUM [Concomitant]
     Active Substance: POTASSIUM
  8. SOTALOL. [Concomitant]
     Active Substance: SOTALOL
  9. ELIQUIS [Concomitant]
     Active Substance: APIXABAN
  10. FISH OIL [Concomitant]
     Active Substance: FISH OIL
  11. FUROSEMIDE. [Concomitant]
     Active Substance: FUROSEMIDE
  12. AZOR [Concomitant]
     Active Substance: AMLODIPINE BESYLATE\OLMESARTAN MEDOXOMIL

REACTIONS (4)
  - Activities of daily living impaired [None]
  - Arthralgia [None]
  - Myalgia [None]
  - Asthenia [None]

NARRATIVE: CASE EVENT DATE: 20160525
